FAERS Safety Report 23245964 (Version 1)
Quarter: 2023Q4

REPORT INFORMATION
  Report Type: Spontaneous
  Country: GT (occurrence: GT)
  Receive Date: 20231130
  Receipt Date: 20231130
  Transmission Date: 20240109
  Serious: Yes (Other)
  Sender: FDA-Public Use
  Company Number: GT-002147023-NVSC2023GT050013

PATIENT
  Age: 37 Year
  Sex: Female

DRUGS (6)
  1. KISQALI [Suspect]
     Active Substance: RIBOCICLIB
     Dosage: 600 MG, QD
     Route: 048
     Dates: start: 20230218
  2. KISQALI [Suspect]
     Active Substance: RIBOCICLIB
     Indication: Breast cancer
     Dosage: 600 MG, QD
     Route: 048
     Dates: start: 20230222, end: 20230410
  3. KISQALI [Suspect]
     Active Substance: RIBOCICLIB
     Dosage: 600 MG, QD
     Route: 048
     Dates: start: 20230518
  4. ZOLEDRONIC ACID [Suspect]
     Active Substance: ZOLEDRONIC ACID
     Indication: Product used for unknown indication
     Dosage: UNK
     Route: 065
  5. AROMASIN [Concomitant]
     Active Substance: EXEMESTANE
     Indication: Product used for unknown indication
     Dosage: UNK
     Route: 065
  6. GOSERELIN [Concomitant]
     Active Substance: GOSERELIN
     Indication: Product used for unknown indication
     Dosage: UNK
     Route: 065

REACTIONS (13)
  - Neutropenia [Unknown]
  - Haematochezia [Unknown]
  - Nausea [Unknown]
  - Abdominal pain upper [Unknown]
  - Inflammation [Not Recovered/Not Resolved]
  - Pruritus [Unknown]
  - Discomfort [Unknown]
  - Feeling abnormal [Unknown]
  - Decreased immune responsiveness [Unknown]
  - Abdominal discomfort [Unknown]
  - Synovial cyst [Unknown]
  - Vomiting [Unknown]
  - Gastritis [Unknown]

NARRATIVE: CASE EVENT DATE: 20230226
